FAERS Safety Report 13824125 (Version 1)
Quarter: 2017Q3

REPORT INFORMATION
  Report Type: Spontaneous
  Country: US (occurrence: US)
  Receive Date: 20170802
  Receipt Date: 20170802
  Transmission Date: 20171127
  Serious: Yes (Hospitalization, Other)
  Sender: FDA-Public Use
  Company Number: US-PIRAMAL ENTERPRISES LTD-T201702127

PATIENT
  Age: 12 Year
  Sex: Male
  Weight: 19 kg

DRUGS (6)
  1. QVAR [Concomitant]
     Active Substance: BECLOMETHASONE DIPROPIONATE
  2. GABLOFEN [Suspect]
     Active Substance: BACLOFEN
     Indication: MUSCLE SPASTICITY
     Dosage: 301.2 MCG/DAY
     Route: 037
  3. SINEMET [Concomitant]
     Active Substance: CARBIDOPA\LEVODOPA
  4. MELATONIN [Concomitant]
     Active Substance: MELATONIN
  5. BOTOX [Concomitant]
     Active Substance: ONABOTULINUMTOXINA
  6. PROVENTIL [Concomitant]
     Active Substance: ALBUTEROL

REACTIONS (7)
  - Vomiting [Recovered/Resolved]
  - Cerebrospinal fluid leakage [Unknown]
  - Meningitis staphylococcal [None]
  - Implant site infection [Unknown]
  - Pyrexia [Recovered/Resolved]
  - Staphylococcal infection [None]
  - Implant site swelling [Unknown]

NARRATIVE: CASE EVENT DATE: 20170427
